FAERS Safety Report 18362525 (Version 1)
Quarter: 2020Q4

REPORT INFORMATION
  Report Type: Other
  Country: CA (occurrence: CA)
  Receive Date: 20201009
  Receipt Date: 20201009
  Transmission Date: 20210114
  Serious: Yes (Other)
  Sender: FDA-Public Use
  Company Number: CA-CELLTRION INC.-2020CA028539

PATIENT

DRUGS (6)
  1. DAPSONE. [Concomitant]
     Active Substance: DAPSONE
     Dosage: 75 MILLIGRAM
     Route: 065
  2. MYCOPHENOLATE SODIUM [Concomitant]
     Active Substance: MYCOPHENOLATE SODIUM
     Dosage: 360 MILLIGRAM, 11 EVERY 1 DAYS
     Route: 065
  3. CLOBETASOL [Concomitant]
     Active Substance: CLOBETASOL
  4. RITUXIMAB (UNKNOWN) [Suspect]
     Active Substance: RITUXIMAB
     Indication: PEMPHIGUS
     Dosage: 1000 MILLIGRAM
     Route: 042
  5. PREDNISONE. [Concomitant]
     Active Substance: PREDNISONE
     Dosage: 50 MILLIGRAM, 1 EVERY 1 DAYS
     Route: 048
  6. FOSAMAX [Concomitant]
     Active Substance: ALENDRONATE SODIUM

REACTIONS (3)
  - Aortic disorder [Unknown]
  - Kyphosis [Unknown]
  - Spinal compression fracture [Unknown]
